FAERS Safety Report 22227627 (Version 2)
Quarter: 2024Q3

REPORT INFORMATION
  Report Type: Report from Study
  Country: CN (occurrence: CN)
  Receive Date: 20230419
  Receipt Date: 20240826
  Transmission Date: 20241016
  Serious: Yes (Other)
  Sender: RANBAXY
  Company Number: CN-SUN PHARMACEUTICAL INDUSTRIES LTD-2023R1-385294

PATIENT
  Age: 15 Year
  Sex: Male

DRUGS (1)
  1. DECITABINE [Suspect]
     Active Substance: DECITABINE
     Indication: Juvenile chronic myelomonocytic leukaemia
     Dosage: 20 MILLIGRAM/SQ. METER
     Route: 065

REACTIONS (2)
  - Thrombocytopenia [Unknown]
  - Therapeutic response decreased [Unknown]
